FAERS Safety Report 11842003 (Version 1)
Quarter: 2015Q4

REPORT INFORMATION
  Report Type: Other
  Country: US (occurrence: US)
  Receive Date: 20151216
  Receipt Date: 20151216
  Transmission Date: 20160305
  Serious: Yes (Hospitalization, Other)
  Sender: FDA-Public Use
  Company Number: US-ENDO PHARMACEUTICALS INC-2015-004852

PATIENT
  Age: 38 Year
  Sex: Male

DRUGS (5)
  1. TOPIRAMATE. [Suspect]
     Active Substance: TOPIRAMATE
     Indication: PRODUCT USED FOR UNKNOWN INDICATION
     Route: 065
  2. OXCARBAZEPINE. [Suspect]
     Active Substance: OXCARBAZEPINE
     Indication: PRODUCT USED FOR UNKNOWN INDICATION
     Route: 065
  3. LEVETIRACETAM TABLETS 750MG [Suspect]
     Active Substance: LEVETIRACETAM
     Route: 065
  4. LEVETIRACETAM TABLETS 750MG [Suspect]
     Active Substance: LEVETIRACETAM
     Indication: PROPHYLAXIS
     Route: 065
  5. LEVETIRACETAM TABLETS 750MG [Suspect]
     Active Substance: LEVETIRACETAM
     Route: 065

REACTIONS (3)
  - Hypothermia [Recovering/Resolving]
  - Bradycardia [Recovering/Resolving]
  - Generalised tonic-clonic seizure [Unknown]
